FAERS Safety Report 4914096-1 (Version None)
Quarter: 2006Q1

REPORT INFORMATION
  Report Type: 
  Country: None (occurrence: None)
  Receive Date: 20060113
  Receipt Date: 20051116
  Transmission Date: 20060701
  Serious: No
  Sender: FDA-Public Use
  Company Number: 2005SP004035

PATIENT
  Age: 54 Year
  Sex: Female
  Weight: 67.1324 kg

DRUGS (6)
  1. LUNESTA [Suspect]
     Indication: INSOMNIA
     Dosage: 3 MG, HS, ORAL
     Route: 048
     Dates: start: 20050101
  2. AVINZA [Concomitant]
  3. ALPRAZOLAM [Concomitant]
  4. PROMETHAZINE [Concomitant]
  5. FIORINAL [Concomitant]
  6. ESTROGENS CONJUGATED [Concomitant]

REACTIONS (3)
  - DRUG INEFFECTIVE [None]
  - DYSGEUSIA [None]
  - MIDDLE INSOMNIA [None]
